FAERS Safety Report 21834901 (Version 2)
Quarter: 2023Q1

REPORT INFORMATION
  Report Type: Spontaneous
  Country: CA (occurrence: CA)
  Receive Date: 20230109
  Receipt Date: 20230227
  Transmission Date: 20230418
  Serious: Yes (Other)
  Sender: FDA-Public Use
  Company Number: CA-PFIZER INC-202300003753

PATIENT
  Age: 68 Year
  Sex: Male

DRUGS (3)
  1. ABRILADA [Suspect]
     Active Substance: ADALIMUMAB-AFZB
     Indication: Psoriasis
     Dosage: 40 MG, EVERY 2 WEEK, PREFILLED PEN
     Route: 058
  2. CELEBREX [Concomitant]
     Active Substance: CELECOXIB
     Dosage: 1 DF
  3. PREVACID [Concomitant]
     Active Substance: LANSOPRAZOLE
     Dosage: 1 DF

REACTIONS (1)
  - Bronchitis bacterial [Unknown]

NARRATIVE: CASE EVENT DATE: 20221201
